FAERS Safety Report 6458596-4 (Version None)
Quarter: 2009Q4

REPORT INFORMATION
  Report Type: 
  Country: None (occurrence: None)
  Receive Date: 20091126
  Receipt Date: 20091112
  Transmission Date: 20100525
  Serious: Yes (Hospitalization)
  Sender: FDA-Public Use
  Company Number: FR-JNJFOC-20091106661

PATIENT
  Sex: Male

DRUGS (13)
  1. CONTRAMAL [Suspect]
     Indication: PAIN
     Dosage: 100 MG/2ML
     Route: 042
  2. VINORELBINE [Suspect]
     Indication: CHEMOTHERAPY
     Route: 042
  3. ANTIEMETICS AND ANTINAUSEANTS [Concomitant]
  4. PRAZEPAM [Concomitant]
     Dosage: HALF A TABLET IN THE MORNING AND IN THE EVENING
  5. PAROXETINE HCL [Concomitant]
     Dosage: HALF A TABLET IN THE EVENING
  6. STILNOX [Concomitant]
     Dosage: 1 TABLET IN THE EVENING
  7. FLUVASTATIN [Concomitant]
     Dosage: 1 TABLET IN THE EVENING
  8. EZETROL [Concomitant]
     Dosage: 1 TABLET IN THE EVENING
  9. CISPLATIN [Concomitant]
     Indication: CHEMOTHERAPY
     Route: 042
  10. NEXIUM [Concomitant]
     Dosage: 1 TABLET IN THE EVENING
  11. ALL OTHER THERAPEUTIC PRODUCTS [Concomitant]
     Dosage: 2 BAGS OF 1L DAILY WITH 2 G OF KCL/L
  12. POTASSIUM CHLORIDE [Concomitant]
  13. NEOSTIGMINE BROMIDE [Concomitant]
     Dosage: 1 AMPOULE

REACTIONS (2)
  - CONSTIPATION [None]
  - INTESTINAL OBSTRUCTION [None]
